FAERS Safety Report 5047441-X (Version None)
Quarter: 2006Q3

REPORT INFORMATION
  Report Type: 
  Country: None (occurrence: None)
  Receive Date: 20060703
  Receipt Date: 20060619
  Transmission Date: 20061208
  Serious: Yes (Death, Other)
  Sender: FDA-Public Use
  Company Number: GXKR2006US03463

PATIENT
  Sex: Female

DRUGS (12)
  1. MEPERIDINE HCL [Suspect]
     Indication: PAIN
  2. MORPHINE [Suspect]
  3. OXYCODONE HYDROCHLORIDE [Suspect]
  4. CLONIDINE HCL [Suspect]
     Indication: PAIN
     Dosage: OCCLUSIVE
     Route: 046
  5. CARISOPRODOL [Suspect]
     Dosage: ORAL
     Route: 048
  6. DIAZEPAM [Suspect]
  7. LORAZEPAM TABLETS USP (NGX) (LORAZEPAM) TABLET [Suspect]
     Indication: PAIN
     Dosage: ORAL
     Route: 048
  8. METHADON HEXAL (NGX) (METHADONE) [Suspect]
     Indication: DRUG WITHDRAWAL MAINTENANCE THERAPY
     Dosage: SEE IMAGE
  9. DEXTROPROPOXYPHENE (DEXTROPROPOXYPHENE) [Suspect]
     Indication: PAIN
  10. ETHCHLORVYNOL [Suspect]
  11. AMPHETAMINE SULFATE [Suspect]
     Indication: MEDICAL DIET
  12. ACETAMINOPHEN [Concomitant]

REACTIONS (9)
  - CONSTIPATION [None]
  - DRUG ABUSER [None]
  - DRUG DEPENDENCE [None]
  - DRUG TOXICITY [None]
  - INCORRECT DOSE ADMINISTERED [None]
  - LETHARGY [None]
  - LOSS OF CONSCIOUSNESS [None]
  - MEMORY IMPAIRMENT [None]
  - URINARY RETENTION [None]
